FAERS Safety Report 13409123 (Version 1)
Quarter: 2017Q2

REPORT INFORMATION
  Report Type: Spontaneous
  Country: US (occurrence: US)
  Receive Date: 20170405
  Receipt Date: 20170405
  Transmission Date: 20170830
  Serious: No
  Sender: FDA-Public Use
  Company Number: None

PATIENT

DRUGS (2)
  1. AQUAPHOR [Suspect]
     Active Substance: PETROLATUM
     Indication: DRY SKIN
     Route: 003
  2. DESITIN [Suspect]
     Active Substance: ZINC OXIDE
     Indication: DERMATITIS DIAPER
     Route: 003

REACTIONS (1)
  - Product barcode issue [None]
